FAERS Safety Report 8587739-1 (Version None)
Quarter: 2012Q3

REPORT INFORMATION
  Report Type: 
  Country: None (occurrence: None)
  Receive Date: 20120813
  Receipt Date: 20120808
  Transmission Date: 20120928
  Serious: Yes (Hospitalization, Other)
  Sender: FDA-Public Use
  Company Number: US-AMGEN-USASP2012049873

PATIENT
  Age: 73 Year
  Sex: Female

DRUGS (4)
  1. CALCIUM WITH VITAMIN D             /00944201/ [Concomitant]
  2. CVS SPECTRAVITE PERFORMANCE [Concomitant]
  3. AMLODIPINE [Concomitant]
     Indication: HYPERTENSION
  4. PROLIA [Suspect]
     Indication: OSTEOPOROSIS POSTMENOPAUSAL
     Dosage: 60 MG, Q6MO
     Dates: start: 20110818

REACTIONS (14)
  - CYSTITIS [None]
  - SKIN BURNING SENSATION [None]
  - RASH [None]
  - TRANSIENT ISCHAEMIC ATTACK [None]
  - ERYTHEMA [None]
  - BLISTER [None]
  - SKIN EXFOLIATION [None]
  - PAIN IN EXTREMITY [None]
  - BLOOD CHOLESTEROL INCREASED [None]
  - SKIN DISORDER [None]
  - MICTURITION URGENCY [None]
  - MUSCLE SPASMS [None]
  - PRURITUS [None]
  - SWELLING FACE [None]
